FAERS Safety Report 8190542-8 (Version None)
Quarter: 2012Q1

REPORT INFORMATION
  Report Type: 
  Country: None (occurrence: None)
  Receive Date: 20120307
  Receipt Date: 20120301
  Transmission Date: 20120608
  Serious: Yes (Hospitalization)
  Sender: FDA-Public Use
  Company Number: US-ABBOTT-12P-163-0910385-00

PATIENT
  Age: 34 Year
  Sex: Female

DRUGS (4)
  1. CIPRO [Concomitant]
     Indication: CROHN'S DISEASE
     Route: 048
  2. HUMIRA [Suspect]
     Indication: CROHN'S DISEASE
     Dates: start: 20070101
  3. SANDIMMUNE [Concomitant]
     Indication: PSORIASIS
     Dosage: DAILY
     Route: 048
  4. FLAGYL [Concomitant]
     Indication: CROHN'S DISEASE
     Route: 048

REACTIONS (2)
  - DERMATITIS [None]
  - INFLUENZA [None]
